FAERS Safety Report 12318147 (Version 2)
Quarter: 2016Q2

REPORT INFORMATION
  Report Type: Spontaneous
  Country: BG (occurrence: BG)
  Receive Date: 20160429
  Receipt Date: 20160506
  Transmission Date: 20160815
  Serious: Yes (Other)
  Sender: FDA-Public Use
  Company Number: BG-009507513-1604BGR015330

PATIENT
  Age: 41 Year
  Sex: Male

DRUGS (3)
  1. BETAMETHASONE. [Suspect]
     Active Substance: BETAMETHASONE
     Indication: GOUT
  2. CORTICOSTEROIDS (UNSPECIFIED) [Concomitant]
     Active Substance: UNSPECIFIED INGREDIENT
     Indication: GOUT
  3. MK-0000 (001) [Suspect]
     Active Substance: DEXAMETHASONE
     Indication: GOUT

REACTIONS (1)
  - Cardiac failure acute [Unknown]
